FAERS Safety Report 18780492 (Version 1)
Quarter: 2021Q1

REPORT INFORMATION
  Report Type: Spontaneous
  Country: US (occurrence: US)
  Receive Date: 20210122
  Receipt Date: 20210122
  Transmission Date: 20210419
  Serious: Yes (Other)
  Sender: FDA-Public Use
  Company Number: None

PATIENT
  Age: 59 Year
  Sex: Female
  Weight: 72 kg

DRUGS (27)
  1. GABAPENTIN 300MG [Concomitant]
     Active Substance: GABAPENTIN
  2. RESTASIS [Concomitant]
     Active Substance: CYCLOSPORINE
  3. ZOPIDEM 10 MG TABLET [Concomitant]
  4. AMLODIPINE [Concomitant]
     Active Substance: AMLODIPINE BESYLATE
  5. VITAMIN D [Concomitant]
     Active Substance: VITAMIN D NOS
  6. ACTEMRA [Suspect]
     Active Substance: TOCILIZUMAB
     Indication: POLYCHONDRITIS
     Dates: start: 20200214, end: 20200918
  7. VALSARTAN. [Concomitant]
     Active Substance: VALSARTAN
  8. ALENDRONATE 70 MG [Concomitant]
     Active Substance: ALENDRONATE SODIUM
  9. MULTIVITAMIN [Concomitant]
     Active Substance: VITAMINS
  10. FISH OIL [Concomitant]
     Active Substance: FISH OIL
  11. SYSTANE DROPS PRN [Concomitant]
  12. METHYLPREDNISOLONE 4MG [Concomitant]
     Active Substance: METHYLPREDNISOLONE
  13. RITUXIMAB. [Concomitant]
     Active Substance: RITUXIMAB
  14. PILCARPINE 5MG TABLET [Concomitant]
  15. POTASSIUM 225MG [Concomitant]
  16. DULOXETINE 60 MG [Concomitant]
     Active Substance: DULOXETINE
  17. TRAMADOL 50MG [Concomitant]
     Active Substance: TRAMADOL
  18. SYSTANE NIGHTTIME [Concomitant]
     Active Substance: MINERAL OIL\PETROLATUM
  19. CALCIUM [Concomitant]
     Active Substance: CALCIUM
  20. CARBIDOPA?LEVODOPA 25?100MG [Concomitant]
  21. METFORMIN [Concomitant]
     Active Substance: METFORMIN HYDROCHLORIDE
  22. FUROSEMIDE 20MG? [Concomitant]
  23. BUDESONIDE 0.5 MG/2 ML NEBULIZER SOLUTION [Concomitant]
  24. ACTEMRA [Suspect]
     Active Substance: TOCILIZUMAB
     Indication: RHEUMATOID ARTHRITIS
     Dates: start: 20200214, end: 20200918
  25. HYDROXYCHLOROQUINE 300 MG [Concomitant]
  26. TIZANIDINE 4 MG [Concomitant]
     Active Substance: TIZANIDINE
  27. FLAXSEED [Concomitant]
     Active Substance: FLAX SEED

REACTIONS (1)
  - Pancreatitis [None]

NARRATIVE: CASE EVENT DATE: 20200924
